FAERS Safety Report 5370006-7 (Version None)
Quarter: 2007Q2

REPORT INFORMATION
  Report Type: 
  Country: None (occurrence: None)
  Receive Date: 20070626
  Receipt Date: 20070618
  Transmission Date: 20071010
  Serious: Yes (Disabling)
  Sender: FDA-Public Use
  Company Number: PHBS2007FI10073

PATIENT
  Age: 66 Year
  Sex: Male

DRUGS (17)
  1. ZOMETA [Suspect]
     Indication: METASTASES TO BONE
     Dosage: 4 MG, UNK
     Route: 042
     Dates: start: 20040916, end: 20070315
  2. MOVICOL [Concomitant]
     Indication: CONSTIPATION
     Dosage: 1 DF, UNK
     Route: 048
  3. IDEOS [Concomitant]
     Dosage: UNK, QD
     Route: 048
     Dates: start: 20040916
  4. MAREVAN [Concomitant]
     Dosage: 3 MG, UNK
     Dates: start: 20051201
  5. OBSIDAN [Concomitant]
     Indication: ANAEMIA
     Dosage: 10 MG, QD
     Route: 048
     Dates: start: 20060101
  6. BEREX [Concomitant]
     Dosage: 1 DF, UNK
     Dates: start: 20060101
  7. FUROMIN [Concomitant]
     Indication: FLUID RETENTION
     Dosage: 40 MG, BID
     Route: 048
  8. EMCONCOR                                /BEL/ [Concomitant]
     Indication: CARDIAC FAILURE
     Dosage: 5 MG, UNK
     Dates: start: 20050101
  9. TRIMEX [Concomitant]
     Indication: PROPHYLAXIS
     Dosage: 100 MG, UNK
     Route: 048
     Dates: start: 20051201
  10. PROCREN [Concomitant]
     Indication: PROSTATE CANCER
     Route: 058
     Dates: start: 20031219
  11. OXYSTIN [Concomitant]
     Indication: CANCER PAIN
     Dosage: 80 MG, QD
     Route: 048
     Dates: start: 20061220
  12. ZOPINOX [Concomitant]
     Indication: INSOMNIA
     Dosage: 7.5 MG, UNK
     Dates: start: 20050101
  13. NEORECORMON [Concomitant]
     Indication: ANAEMIA
     Dosage: 3000 IU, QW
  14. PANADOL [Concomitant]
     Indication: PAIN
     Dosage: 1 G, UNK
     Dates: start: 20050101
  15. TAXOTERE [Concomitant]
     Indication: PROSTATE CANCER
     Dosage: 150 MG, UNK
     Dates: start: 20060401, end: 20070216
  16. LANSOPRAZOLE [Concomitant]
     Indication: PROPHYLAXIS
     Dosage: 30 MG, UNK
     Dates: start: 20060401, end: 20070401
  17. DEXAMETHASONE 0.5MG TAB [Concomitant]
     Indication: PROPHYLAXIS
     Dosage: 1.5 MG, QD
     Dates: start: 20060401, end: 20070401

REACTIONS (5)
  - LOCALISED OEDEMA [None]
  - OSTEONECROSIS [None]
  - PAIN [None]
  - TOOTH EXTRACTION [None]
  - WOUND TREATMENT [None]
